FAERS Safety Report 9266616 (Version 11)
Quarter: 2014Q2

REPORT INFORMATION
  Report Type: Report from Study
  Country: CH (occurrence: CH)
  Receive Date: 20130502
  Receipt Date: 20140625
  Transmission Date: 20141212
  Serious: Yes (Life-Threatening, Hospitalization, Disabling, Other)
  Sender: FDA-Public Use
  Company Number: PHHO2013CH005763

PATIENT
  Sex: 0

DRUGS (6)
  1. FTY 720 [Suspect]
     Indication: MULTIPLE SCLEROSIS
     Dosage: 0.5 MG, QD
     Route: 048
     Dates: start: 20100423
  2. WELLBUTRIN [Concomitant]
     Indication: DEPRESSION
     Dosage: 300 MG, UNK
     Route: 048
     Dates: start: 20120713
  3. WELLBUTRIN [Concomitant]
     Indication: DYSTHYMIC DISORDER
  4. DIPIPERON [Concomitant]
     Dosage: 20 MG, TID
     Route: 048
  5. KEPPRA [Concomitant]
     Dosage: 500 MG, BID
     Route: 048
  6. PRADIF [Concomitant]
     Dosage: 400 MG, QD
     Route: 048

REACTIONS (6)
  - Herpes simplex meningoencephalitis [Recovered/Resolved with Sequelae]
  - Rhabdomyolysis [Recovered/Resolved]
  - Pneumonia [Recovered/Resolved]
  - Pulmonary embolism [Not Recovered/Not Resolved]
  - Pyrexia [Not Recovered/Not Resolved]
  - Aspiration [Not Recovered/Not Resolved]
